FAERS Safety Report 16781457 (Version 4)
Quarter: 2020Q2

REPORT INFORMATION
  Report Type: Spontaneous
  Country: US (occurrence: US)
  Receive Date: 20190906
  Receipt Date: 20200617
  Transmission Date: 20200713
  Serious: No
  Sender: FDA-Public Use
  Company Number: US-SA-2019SA243735

PATIENT

DRUGS (20)
  1. ISOSORBIDE MONONITRATE. [Concomitant]
     Active Substance: ISOSORBIDE MONONITRATE
  2. JARDIANCE [Concomitant]
     Active Substance: EMPAGLIFLOZIN
  3. MONTELUKAST SODIUM. [Concomitant]
     Active Substance: MONTELUKAST SODIUM
  4. BENAZEPRIL HCL [Concomitant]
     Active Substance: BENAZEPRIL HYDROCHLORIDE
  5. METFORMIN HCL [Concomitant]
     Active Substance: METFORMIN HYDROCHLORIDE
  6. SERTRALINE HCL [Concomitant]
     Active Substance: SERTRALINE HYDROCHLORIDE
  7. ALPHA LIPOIC ACID [Concomitant]
     Active Substance: .ALPHA.-LIPOIC ACID
  8. LANTUS [Concomitant]
     Active Substance: INSULIN GLARGINE
  9. OMEPRAZOLE. [Concomitant]
     Active Substance: OMEPRAZOLE
  10. GABAPENTIN. [Concomitant]
     Active Substance: GABAPENTIN
  11. PRALUENT [Suspect]
     Active Substance: ALIROCUMAB
     Indication: TYPE V HYPERLIPIDAEMIA
     Dosage: 75 MG, QOW
     Route: 058
     Dates: start: 20180117
  12. FENOFIBRATE. [Concomitant]
     Active Substance: FENOFIBRATE
  13. OMEGA 3 [FISH OIL] [Concomitant]
     Active Substance: FISH OIL
  14. BUMETANIDE. [Concomitant]
     Active Substance: BUMETANIDE
  15. ASPIRIN 81 [Concomitant]
     Active Substance: ASPIRIN
  16. HUMALOG [Concomitant]
     Active Substance: INSULIN LISPRO
  17. CARVEDILOL. [Concomitant]
     Active Substance: CARVEDILOL
  18. NITROGLYCERIN. [Concomitant]
     Active Substance: NITROGLYCERIN
  19. SYMBICORT [Concomitant]
     Active Substance: BUDESONIDE\FORMOTEROL FUMARATE DIHYDRATE
  20. CLOTRIMAZOLE. [Concomitant]
     Active Substance: CLOTRIMAZOLE

REACTIONS (4)
  - Pruritus [Unknown]
  - Pruritus [Unknown]
  - Injection site bruising [Recovered/Resolved]
  - Injection site pruritus [Recovered/Resolved]

NARRATIVE: CASE EVENT DATE: 20190827
